FAERS Safety Report 18251912 (Version 7)
Quarter: 2021Q1

REPORT INFORMATION
  Report Type: Report from Study
  Country: US (occurrence: US)
  Receive Date: 20200910
  Receipt Date: 20210113
  Transmission Date: 20210419
  Serious: Yes (Hospitalization, Other)
  Sender: FDA-Public Use
  Company Number: NVSC2020US247594

PATIENT
  Age: 68 Year
  Sex: Male

DRUGS (1)
  1. ENTRESTO [Suspect]
     Active Substance: SACUBITRIL\VALSARTAN
     Indication: PRODUCT USED FOR UNKNOWN INDICATION
     Dosage: 100 MG, BID (49/51 MG)
     Route: 048
     Dates: start: 202008

REACTIONS (8)
  - Dizziness [Recovering/Resolving]
  - Influenza [Recovering/Resolving]
  - Dehydration [Unknown]
  - Dizziness postural [Not Recovered/Not Resolved]
  - Product dispensing error [Unknown]
  - Blood glucose increased [Recovering/Resolving]
  - Loss of consciousness [Unknown]
  - Cataract [Not Recovered/Not Resolved]

NARRATIVE: CASE EVENT DATE: 202008
